FAERS Safety Report 8258951-6 (Version None)
Quarter: 2012Q2

REPORT INFORMATION
  Report Type: 
  Country: None (occurrence: None)
  Receive Date: 20120404
  Receipt Date: 20120328
  Transmission Date: 20120825
  Serious: Yes (Hospitalization)
  Sender: FDA-Public Use
  Company Number: TN-SANOFI-AVENTIS-2012SA016528

PATIENT
  Age: 32 Year
  Sex: Male

DRUGS (3)
  1. FOSFOMYCIN [Concomitant]
  2. CEFOTAXIME SODIUM [Suspect]
     Route: 065
  3. GENTAMICIN [Concomitant]

REACTIONS (14)
  - RASH MACULO-PAPULAR [None]
  - ERYTHEMA [None]
  - ASPARTATE AMINOTRANSFERASE INCREASED [None]
  - FACE OEDEMA [None]
  - PYREXIA [None]
  - CYTOLYTIC HEPATITIS [None]
  - ALANINE AMINOTRANSFERASE INCREASED [None]
  - C-REACTIVE PROTEIN INCREASED [None]
  - EOSINOPHILIA [None]
  - DRUG RASH WITH EOSINOPHILIA AND SYSTEMIC SYMPTOMS [None]
  - RASH PRURITIC [None]
  - OCULAR HYPERAEMIA [None]
  - BLOOD LACTATE DEHYDROGENASE INCREASED [None]
  - LYMPHADENOPATHY [None]
